FAERS Safety Report 25768539 (Version 1)
Quarter: 2025Q3

REPORT INFORMATION
  Report Type: Spontaneous
  Country: US (occurrence: US)
  Receive Date: 20250905
  Receipt Date: 20250905
  Transmission Date: 20251021
  Serious: No
  Sender: TAIHO ONCOLOGY INC
  Company Number: US-TAIHOP-2025-009351

PATIENT
  Sex: Male
  Weight: 92.99 kg

DRUGS (1)
  1. INQOVI [Suspect]
     Active Substance: CEDAZURIDINE\DECITABINE
     Indication: Chronic myeloid leukaemia
     Dosage: ON DAYS 1 AND 2 ONLY FOR EACH 28 DAY CYCLE.?CYCLE UNKNOWN.
     Route: 048
     Dates: start: 202502

REACTIONS (3)
  - Asthenia [Unknown]
  - Inappropriate schedule of product administration [Unknown]
  - Underdose [Unknown]
